FAERS Safety Report 7007234-0 (Version None)
Quarter: 2010Q3

REPORT INFORMATION
  Report Type: 
  Country: None (occurrence: None)
  Receive Date: 20100922
  Receipt Date: 20100913
  Transmission Date: 20110219
  Serious: Yes (Hospitalization)
  Sender: FDA-Public Use
  Company Number: FR-ASTRAZENECA-2010SE43590

PATIENT
  Age: 59 Year
  Sex: Male

DRUGS (1)
  1. DIPRIVAN [Suspect]
     Indication: ANAESTHESIA
     Route: 042
     Dates: start: 20100902, end: 20100902

REACTIONS (2)
  - HEPATITIS ACUTE [None]
  - PYREXIA [None]
